FAERS Safety Report 23639084 (Version 1)
Quarter: 2024Q1

REPORT INFORMATION
  Report Type: Spontaneous
  Country: IN (occurrence: IN)
  Receive Date: 20240315
  Receipt Date: 20240315
  Transmission Date: 20240409
  Serious: Yes (Hospitalization, Other)
  Sender: FDA-Public Use
  Company Number: IN-009507513-2403IND003937

PATIENT
  Age: 31 Year
  Sex: Female

DRUGS (7)
  1. PEMBROLIZUMAB [Suspect]
     Active Substance: PEMBROLIZUMAB
     Indication: Tongue neoplasm malignant stage unspecified
     Dosage: 200 MILLIGRAM
     Route: 042
     Dates: start: 20240202
  2. CISPLATIN [Suspect]
     Active Substance: CISPLATIN
     Indication: Tongue neoplasm malignant stage unspecified
     Dosage: UNK
     Route: 042
     Dates: start: 20240202
  3. FLUOROURACIL [Suspect]
     Active Substance: FLUOROURACIL
     Indication: Tongue neoplasm malignant stage unspecified
     Dosage: UNK
     Route: 042
     Dates: start: 20240202
  4. EMSET [Concomitant]
     Dosage: 8 MILLIGRAM
     Route: 042
     Dates: start: 20240202
  5. DEXAMETHASONE [Concomitant]
     Active Substance: DEXAMETHASONE
     Dosage: 8 MILLIGRAM
     Route: 042
     Dates: start: 20240202
  6. MANNITOL [Concomitant]
     Active Substance: MANNITOL
     Dosage: 50 MILLILITER
     Route: 042
     Dates: start: 20240202
  7. MORPHINE [Concomitant]
     Active Substance: MORPHINE
     Dosage: UNK

REACTIONS (5)
  - Blister [Unknown]
  - Rash [Unknown]
  - Bacterial infection [Unknown]
  - Skin exfoliation [Unknown]
  - Pustule [Unknown]

NARRATIVE: CASE EVENT DATE: 20240201
